FAERS Safety Report 8103875-8 (Version None)
Quarter: 2012Q1

REPORT INFORMATION
  Report Type: 
  Country: None (occurrence: None)
  Receive Date: 20120201
  Receipt Date: 20120127
  Transmission Date: 20120608
  Serious: Yes (Death)
  Sender: FDA-Public Use
  Company Number: US-PFIZER INC-2012023494

PATIENT
  Sex: Female
  Weight: 106.6 kg

DRUGS (5)
  1. CYMBALTA [Concomitant]
     Dosage: UNK
  2. ZYVOX [Suspect]
     Indication: PNEUMONIA
     Dosage: 600 MG, 2X/DAY
     Dates: start: 20110718
  3. WELLBUTRIN [Suspect]
     Dosage: UNK
     Route: 048
  4. ZYVOX [Suspect]
     Indication: STAPHYLOCOCCAL INFECTION
     Dosage: UNK
  5. WELLBUTRIN [Suspect]
     Indication: SEROTONIN SYNDROME
     Dosage: 75 MG, 2X/DAY
     Route: 048

REACTIONS (1)
  - DEATH [None]
